FAERS Safety Report 11369080 (Version 1)
Quarter: 2015Q3

REPORT INFORMATION
  Report Type: Report from Study
  Country: US (occurrence: US)
  Receive Date: 20150812
  Receipt Date: 20150812
  Transmission Date: 20151125
  Serious: Yes (Hospitalization, Other)
  Sender: FDA-Public Use
  Company Number: US-GILEAD-2015-0166978

PATIENT
  Age: 31 Year
  Sex: Female

DRUGS (2)
  1. AMBRISENTAN [Suspect]
     Active Substance: AMBRISENTAN
     Indication: PULMONARY HYPERTENSION
     Dosage: 5 MG, QD
     Route: 065
     Dates: start: 20130416
  2. VELETRI [Concomitant]
     Active Substance: EPOPROSTENOL

REACTIONS (3)
  - Pulmonary hypertension [Unknown]
  - Oedema peripheral [Unknown]
  - Fluid overload [Unknown]
